FAERS Safety Report 8863330 (Version 1)
Quarter: 2012Q4

REPORT INFORMATION
  Report Type: 
  Country: US (occurrence: US)
  Receive Date: 20121025
  Receipt Date: 20121025
  Transmission Date: 20130627
  Serious: Yes (Other)
  Sender: FDA-Public Use
  Company Number: US-ROCHE-GNE238596

PATIENT
  Sex: Male

DRUGS (3)
  1. RAPTIVA [Suspect]
     Indication: PSORIASIS
     Dosage: UNK, 1/Week
     Route: 058
     Dates: start: 20051106
  2. RAPTIVA [Suspect]
     Indication: PUSTULAR PSORIASIS
     Dosage: Conditioning dose  0.6 ml
     Route: 058
     Dates: start: 20050305
  3. RAPTIVA [Suspect]
     Indication: PUSTULAR PSORIASIS

REACTIONS (6)
  - Haemochromatosis [Unknown]
  - Liver function test abnormal [Recovered/Resolved]
  - Pruritus [Unknown]
  - Haemorrhage [Unknown]
  - Pain [Unknown]
  - Lichen planus [Unknown]
